FAERS Safety Report 7227747-6 (Version None)
Quarter: 2011Q1

REPORT INFORMATION
  Report Type: 
  Country: None (occurrence: None)
  Receive Date: 20110111
  Receipt Date: 20110111
  Transmission Date: 20110831
  Serious: Yes (Life-Threatening, Other)
  Sender: FDA-Public Use
  Company Number: None

PATIENT
  Age: 37 Year
  Sex: Male
  Weight: 77.1115 kg

DRUGS (1)
  1. NUVIGIL [Suspect]
     Indication: MENTAL DISORDER
     Dosage: 150MG QD PO
     Route: 048
     Dates: start: 20090710, end: 20101227

REACTIONS (1)
  - MANIA [None]
